FAERS Safety Report 7031495-5 (Version None)
Quarter: 2010Q4

REPORT INFORMATION
  Report Type: 
  Country: None (occurrence: None)
  Receive Date: 20101005
  Receipt Date: 20101005
  Transmission Date: 20110411
  Serious: Yes (Hospitalization)
  Sender: FDA-Public Use
  Company Number: None

PATIENT
  Age: 71 Year
  Sex: Male
  Weight: 106 kg

DRUGS (2)
  1. LISINOPRIL AND HYDROCHLOROTHIAZIDE [Suspect]
     Indication: HYPERTENSION
     Dosage: 1 TAB EVERY DAY PO
     Route: 048
     Dates: start: 20040309, end: 20100930
  2. TERAZOSIN HCL [Suspect]
     Indication: HYPERTENSION
     Dosage: 5 MG HS PO
     Route: 048
     Dates: start: 20031027, end: 20100930

REACTIONS (1)
  - HYPOTENSION [None]
